FAERS Safety Report 14122420 (Version 1)
Quarter: 2017Q4

REPORT INFORMATION
  Report Type: Spontaneous
  Country: IT (occurrence: IT)
  Receive Date: 20171024
  Receipt Date: 20171024
  Transmission Date: 20180321
  Serious: Yes (Other)
  Sender: FDA-Public Use
  Company Number: IT-BAUSCH-BL-2017-027379

PATIENT
  Age: 81 Year
  Sex: Female

DRUGS (1)
  1. MACUGEN [Suspect]
     Active Substance: PEGAPTANIB SODIUM
     Indication: NEOVASCULAR AGE-RELATED MACULAR DEGENERATION
     Dosage: ONE CYCLIC ADMINISTRATION
     Route: 047
     Dates: start: 20150702, end: 20170615

REACTIONS (2)
  - Age-related macular degeneration [Unknown]
  - Therapy non-responder [Unknown]

NARRATIVE: CASE EVENT DATE: 20170914
